FAERS Safety Report 9060314 (Version 4)
Quarter: 2013Q1

REPORT INFORMATION
  Report Type: Report from Study
  Country: IT (occurrence: IT)
  Receive Date: 20130212
  Receipt Date: 20130301
  Transmission Date: 20140127
  Serious: Yes (Death, Hospitalization)
  Sender: FDA-Public Use
  Company Number: IT-BAXTER-2013BAX005327

PATIENT
  Age: 70 None
  Sex: Male
  Weight: 79 kg

DRUGS (15)
  1. ENDOXAN BAXTER [Suspect]
     Indication: DIFFUSE LARGE B-CELL LYMPHOMA
     Route: 042
     Dates: start: 20121012
  2. ENDOXAN BAXTER [Suspect]
     Route: 042
     Dates: start: 20130110
  3. DOXORUBICIN [Suspect]
     Indication: DIFFUSE LARGE B-CELL LYMPHOMA
     Route: 042
     Dates: start: 20121012
  4. DOXORUBICIN [Suspect]
     Route: 042
     Dates: start: 20130110
  5. VINCRISTINE [Suspect]
     Indication: DIFFUSE LARGE B-CELL LYMPHOMA
     Route: 040
     Dates: start: 20121012
  6. VINCRISTINE [Suspect]
     Route: 040
     Dates: start: 20130110
  7. PREDNISONE [Suspect]
     Indication: DIFFUSE LARGE B-CELL LYMPHOMA
     Route: 048
     Dates: start: 20121012
  8. PREDNISONE [Suspect]
     Route: 048
     Dates: start: 20130114
  9. ALLOPURINOL [Concomitant]
     Indication: HYPERURICAEMIA
     Route: 065
     Dates: start: 20121012
  10. LANSOPRAZOLE [Concomitant]
     Indication: GASTRIC ULCER
     Route: 065
     Dates: start: 20121012
  11. CHLORPHENIRAMINE MALEATE [Concomitant]
     Indication: PREMEDICATION
     Route: 065
     Dates: start: 20121012
  12. TROPISETRON [Concomitant]
     Indication: PREMEDICATION
     Route: 065
     Dates: start: 20121012
  13. ALIZAPRIDE HYDROCHLORIDE [Concomitant]
     Indication: PREMEDICATION
     Route: 065
     Dates: start: 20121012
  14. ZEFFIX [Concomitant]
     Indication: ANTIVIRAL PROPHYLAXIS
     Route: 065
     Dates: start: 20121012
  15. PARACETAMOL [Concomitant]
     Indication: PREMEDICATION
     Route: 065
     Dates: start: 20121012

REACTIONS (1)
  - Pneumonia [Fatal]
